FAERS Safety Report 10946540 (Version 1)
Quarter: 2015Q1

REPORT INFORMATION
  Report Type: Spontaneous
  Country: DE (occurrence: DE)
  Receive Date: 20150323
  Receipt Date: 20150323
  Transmission Date: 20150721
  Serious: Yes (Death)
  Sender: FDA-Public Use
  Company Number: DE-PFIZER INC-2015096596

PATIENT
  Age: 75 Year
  Sex: Male
  Weight: 77 kg

DRUGS (3)
  1. INLYTA [Suspect]
     Active Substance: AXITINIB
     Dosage: 3 MG, 2X/DAY
     Route: 048
     Dates: start: 201409, end: 201412
  2. INLYTA [Suspect]
     Active Substance: AXITINIB
     Indication: RENAL CANCER METASTATIC
     Dosage: 5 MG, 2X/DAY
     Route: 048
     Dates: start: 201401, end: 201405
  3. TEMSIROLIMUS [Concomitant]
     Active Substance: TEMSIROLIMUS
     Indication: RENAL CANCER METASTATIC
     Dosage: 25 MG, UNK
     Route: 042
     Dates: start: 201303, end: 201401

REACTIONS (1)
  - Pulmonary fibrosis [Fatal]

NARRATIVE: CASE EVENT DATE: 20141215
